FAERS Safety Report 20602186 (Version 1)
Quarter: 2022Q1

REPORT INFORMATION
  Report Type: Spontaneous
  Country: US (occurrence: None)
  Receive Date: 20220315
  Receipt Date: 20220315
  Transmission Date: 20220423
  Serious: Yes (Death)
  Sender: FDA-Public Use
  Company Number: None

PATIENT
  Age: 72 Year
  Sex: Female

DRUGS (1)
  1. BOSULIF [Suspect]
     Active Substance: BOSUTINIB MONOHYDRATE
     Indication: Neoplasm malignant
     Dosage: 200 MG DAILY ORAL?
     Route: 048
     Dates: start: 20200826, end: 20220129

REACTIONS (1)
  - Death [None]

NARRATIVE: CASE EVENT DATE: 20220129
